FAERS Safety Report 5538217-5 (Version None)
Quarter: 2007Q4

REPORT INFORMATION
  Report Type: 
  Country: None (occurrence: None)
  Receive Date: 20071123
  Receipt Date: 20061107
  Transmission Date: 20080405
  Serious: Yes (Hospitalization, Other)
  Sender: FDA-Public Use
  Company Number: US-JNJFOC-20061004139

PATIENT
  Age: 53 Year
  Sex: Female

DRUGS (2)
  1. LEVAQUIN [Suspect]
     Indication: ASTHMA
     Dosage: 500 MG, 1 IN 1 DAY, ORAL
     Route: 048
  2. COUMADIN [Concomitant]

REACTIONS (2)
  - DYSPNOEA [None]
  - PHARYNGEAL OEDEMA [None]
